FAERS Safety Report 7506252-3 (Version None)
Quarter: 2011Q2

REPORT INFORMATION
  Report Type: 
  Country: None (occurrence: None)
  Receive Date: 20110526
  Receipt Date: 20110518
  Transmission Date: 20111010
  Serious: Yes (Hospitalization)
  Sender: FDA-Public Use
  Company Number: PHHO2011JP08645

PATIENT
  Sex: Female
  Weight: 61 kg

DRUGS (19)
  1. LIPITOR [Concomitant]
     Indication: HYPERLIPIDAEMIA
  2. AZOSEMIDE [Concomitant]
     Indication: PROPHYLAXIS
  3. ZOLPIDEM [Concomitant]
     Indication: INSOMNIA
  4. CARTEOLOL HYDROCHLORIDE [Concomitant]
     Indication: OCULAR HYPERTENSION
  5. TASIGNA [Suspect]
     Dosage: UNK
     Dates: start: 20110425, end: 20110501
  6. MAGNESIUM OXIDE [Concomitant]
     Indication: PROPHYLAXIS
  7. ORCL [Concomitant]
     Indication: RHEUMATOID ARTHRITIS
  8. ZETIA [Concomitant]
     Indication: HYPERLIPIDAEMIA
  9. TASIGNA [Suspect]
     Indication: GASTROINTESTINAL STROMAL TUMOUR
     Dosage: UNK
     Route: 048
     Dates: start: 20101125, end: 20110424
  10. RABEPRAZOLE SODIUM [Concomitant]
     Indication: PROPHYLAXIS
  11. NICERGOLINE [Concomitant]
     Indication: CEREBRAL INFARCTION
  12. TASIGNA [Suspect]
     Dosage: UNK
     Route: 048
     Dates: start: 20110502
  13. EPERISONE HYDROCHLORIDE [Concomitant]
     Indication: BACK PAIN
  14. ALLOPURINOL [Concomitant]
     Indication: PROPHYLAXIS
  15. PANTETHINE [Concomitant]
     Indication: PROPHYLAXIS
  16. CELECOXIB [Concomitant]
     Indication: RHEUMATOID ARTHRITIS
  17. ONEALFA [Concomitant]
     Indication: PROPHYLAXIS
  18. NAPAGELN [Concomitant]
     Indication: BACK PAIN
  19. MINODRONIC ACID [Concomitant]
     Indication: PROPHYLAXIS

REACTIONS (1)
  - MECHANICAL ILEUS [None]
